FAERS Safety Report 10156239 (Version 1)
Quarter: 2014Q2

REPORT INFORMATION
  Report Type: Report from Study
  Country: FR (occurrence: FR)
  Receive Date: 20140507
  Receipt Date: 20140507
  Transmission Date: 20141212
  Serious: Yes (Hospitalization)
  Sender: FDA-Public Use
  Company Number: FR-ROCHE-1396214

PATIENT
  Age: 32 Year
  Sex: 0

DRUGS (1)
  1. XOLAIR [Suspect]
     Indication: ASTHMA
     Route: 058

REACTIONS (5)
  - Asthma [Unknown]
  - Claustrophobia [Unknown]
  - Agitation [Unknown]
  - Restlessness [Unknown]
  - Headache [Unknown]
